FAERS Safety Report 9562218 (Version 1)
Quarter: 2013Q3

REPORT INFORMATION
  Report Type: Report from Study
  Country: US (occurrence: US)
  Receive Date: 20130927
  Receipt Date: 20130927
  Transmission Date: 20140515
  Serious: Yes (Death)
  Sender: FDA-Public Use
  Company Number: PHEH2013US020174

PATIENT
  Age: 58 Year
  Sex: Male

DRUGS (1)
  1. SANDOSTATIN LAR DEPOT [Suspect]
     Dosage: 30 MG, EVERY FOUR WEEKS
     Route: 030

REACTIONS (2)
  - Death [Fatal]
  - General physical health deterioration [Unknown]
